FAERS Safety Report 9333900 (Version 1)
Quarter: 2013Q2

REPORT INFORMATION
  Report Type: Spontaneous
  Country: US (occurrence: US)
  Receive Date: 20130606
  Receipt Date: 20130606
  Transmission Date: 20140414
  Serious: No
  Sender: FDA-Public Use
  Company Number: US-AMGEN-USASP2013001064

PATIENT
  Age: 85 Year
  Sex: Female

DRUGS (18)
  1. PROLIA [Suspect]
     Indication: OSTEOPOROSIS POSTMENOPAUSAL
     Dosage: UNK
     Dates: start: 20120927
  2. ALIGN [Concomitant]
     Dosage: 4 UNK, UNK
  3. ATIVAN [Concomitant]
     Dosage: 1 UNK, UNK
  4. BACTRIM DS [Concomitant]
     Dosage: 800-160 MG
  5. BENAZEPRIL [Concomitant]
     Dosage: 40 UNK, UNK
  6. BENTYL [Concomitant]
     Dosage: 10 UNK, UNK
  7. BUMEX [Concomitant]
     Dosage: 0.5 UNK, UNK
  8. COUMADIN                           /00014802/ [Concomitant]
     Dosage: 5 UNK, UNK
  9. DIGOXIN [Concomitant]
     Dosage: 0.13 UNK, UNK
  10. HYCODAN                            /00060002/ [Concomitant]
     Dosage: 1.5 MG, UNK
  11. K-TAB [Concomitant]
     Dosage: 10 UNK, UNK
  12. NORVASC [Concomitant]
     Dosage: 5 UNK, UNK
  13. OMEPRAZOLE [Concomitant]
     Dosage: 40 UNK, UNK
  14. RESTORIL                           /00054301/ [Concomitant]
     Dosage: 30 UNK, UNK
  15. TRAZODONE [Concomitant]
     Dosage: 50 UNK, UNK
  16. TYLENOL ARTHRITIS [Concomitant]
     Indication: ARTHRITIS
     Dosage: 650 UNK, UNK
  17. VOLTAREN                           /00372301/ [Concomitant]
     Dosage: 1 UNK, UNK
  18. ZOCOR [Concomitant]
     Dosage: 20 UNK, UNK

REACTIONS (1)
  - Urinary tract infection [Unknown]
